FAERS Safety Report 7026131-8 (Version None)
Quarter: 2010Q4

REPORT INFORMATION
  Report Type: 
  Country: None (occurrence: None)
  Receive Date: 20101004
  Receipt Date: 20100924
  Transmission Date: 20110411
  Serious: No
  Sender: FDA-Public Use
  Company Number: US-BIOGENIDEC-2010BI033390

PATIENT
  Age: 50 Year
  Sex: Female

DRUGS (2)
  1. AVONEX [Suspect]
     Indication: MULTIPLE SCLEROSIS
     Route: 030
     Dates: start: 20050502, end: 20060904
  2. AVONEX [Suspect]
     Route: 030
     Dates: start: 20070929

REACTIONS (4)
  - COGNITIVE DISORDER [None]
  - PAIN [None]
  - PAIN IN EXTREMITY [None]
  - STRESS [None]
